FAERS Safety Report 4540468-3 (Version None)
Quarter: 2004Q4

REPORT INFORMATION
  Report Type: 
  Country: None (occurrence: None)
  Receive Date: 20041228
  Receipt Date: 20041214
  Transmission Date: 20050328
  Serious: Yes (Hospitalization, Other)
  Sender: FDA-Public Use
  Company Number: 2004S1002746

PATIENT
  Age: 60 Year
  Sex: Female

DRUGS (4)
  1. VISTARIL [Suspect]
     Indication: INSOMNIA
     Dosage: 50 MG QD, ORAL
     Route: 048
     Dates: start: 20030101, end: 20040710
  2. LEXAPRO [Suspect]
     Indication: INSOMNIA
     Dosage: 10 MG QD, ORAL
     Route: 048
  3. ALPRAZOLAM [Suspect]
     Indication: INSOMNIA
     Dosage: 0.25 MG QD, ORAL
     Route: 048
     Dates: start: 20040705, end: 20040710
  4. METROGEL [Suspect]
     Indication: ROSACEA
     Dosage: BID
     Dates: start: 20040524

REACTIONS (4)
  - DISORIENTATION [None]
  - DRUG HYPERSENSITIVITY [None]
  - DRUG INTERACTION [None]
  - DRUG TOXICITY [None]
